FAERS Safety Report 17437862 (Version 1)
Quarter: 2020Q1

REPORT INFORMATION
  Report Type: Report from Study
  Country: None (occurrence: US)
  Receive Date: 20200219
  Receipt Date: 20200219
  Transmission Date: 20200409
  Serious: Yes (Other)
  Sender: FDA-Public Use
  Company Number: US-ABBVIE-20K-163-3279046-00

PATIENT
  Sex: Female

DRUGS (1)
  1. CREON [Suspect]
     Active Substance: PANCRELIPASE AMYLASE\PANCRELIPASE LIPASE\PANCRELIPASE PROTEASE
     Indication: PRODUCT USED FOR UNKNOWN INDICATION
     Route: 065

REACTIONS (6)
  - Endoscopy upper gastrointestinal tract [Unknown]
  - Ileostomy [Unknown]
  - Hysterosalpingo-oophorectomy [Unknown]
  - Appendicectomy [Unknown]
  - Catheterisation cardiac [Unknown]
  - Foot operation [Unknown]

NARRATIVE: CASE EVENT DATE: 1970
